FAERS Safety Report 23432634 (Version 1)
Quarter: 2024Q1

REPORT INFORMATION
  Report Type: Spontaneous
  Country: PL (occurrence: PL)
  Receive Date: 20240123
  Receipt Date: 20240123
  Transmission Date: 20240409
  Serious: Yes (Other)
  Sender: FDA-Public Use
  Company Number: None

PATIENT
  Age: 81 Year
  Sex: Male
  Weight: 90 kg

DRUGS (2)
  1. NIVOLUMAB [Suspect]
     Active Substance: NIVOLUMAB
     Indication: Malignant melanoma
     Dosage: VIAL CONTAINS 40 MG; THERAPY ONGOING
     Route: 042
     Dates: start: 20190216
  2. NIVOLUMAB [Suspect]
     Active Substance: NIVOLUMAB
     Dosage: VIAL CONTAINS 100 MG; THERAPY ONGOING
     Route: 042
     Dates: start: 20190216

REACTIONS (2)
  - Fatigue [Unknown]
  - Paraesthesia [Unknown]

NARRATIVE: CASE EVENT DATE: 20190301
